APPROVED DRUG PRODUCT: DECITABINE
Active Ingredient: DECITABINE
Strength: 50MG/VIAL
Dosage Form/Route: INJECTABLE;INTRAVENOUS
Application: A213472 | Product #001 | TE Code: AP
Applicant: JIANGSU HANSOH PHARMACEUTICAL GROUP CO LTD
Approved: Apr 15, 2022 | RLD: No | RS: No | Type: RX